FAERS Safety Report 22217922 (Version 2)
Quarter: 2023Q2

REPORT INFORMATION
  Report Type: Spontaneous
  Country: CZ (occurrence: CZ)
  Receive Date: 20230417
  Receipt Date: 20230424
  Transmission Date: 20230722
  Serious: Yes (Other)
  Sender: FDA-Public Use
  Company Number: CZ-PFIZER INC-PV202300064009

PATIENT
  Age: 48 Year
  Sex: Female

DRUGS (3)
  1. METHYLPREDNISOLONE [Suspect]
     Active Substance: METHYLPREDNISOLONE
     Indication: Asthma
     Dosage: 8 MG, DAILY
     Route: 048
  2. METHYLPREDNISOLONE [Suspect]
     Active Substance: METHYLPREDNISOLONE
     Dosage: INTERMITTENT INCREASE TO16MG/DAY FOR ACUTE EXACERBATION OF BRONCHIAL ASTHMA/WORSENING OF AD SYMPTOMS
     Route: 048
  3. WARFARIN [Suspect]
     Active Substance: WARFARIN
     Dosage: UNK

REACTIONS (11)
  - Steroid diabetes [Unknown]
  - Adrenal insufficiency [Unknown]
  - Glaucoma [Unknown]
  - Spinal fracture [Unknown]
  - Cushingoid [Unknown]
  - Hypertension [Unknown]
  - Dyslipidaemia [Unknown]
  - Electrolyte imbalance [Unknown]
  - Osteoporosis [Unknown]
  - Subcutaneous haematoma [Unknown]
  - International normalised ratio fluctuation [Unknown]

NARRATIVE: CASE EVENT DATE: 20150101
